FAERS Safety Report 5909616-4 (Version None)
Quarter: 2008Q4

REPORT INFORMATION
  Report Type: 
  Country: None (occurrence: None)
  Receive Date: 20081002
  Receipt Date: 20080922
  Transmission Date: 20090506
  Serious: Yes (Hospitalization)
  Sender: FDA-Public Use
  Company Number: TRP_05903_2008

PATIENT
  Sex: Female
  Weight: 68.4932 kg

DRUGS (11)
  1. RIBAVIRIN [Suspect]
     Indication: HEPATITIS C
     Dosage: (600 MG BID ORAL)
     Route: 048
     Dates: start: 20080619, end: 20080903
  2. PEGASYS [Suspect]
     Indication: HEPATITIS C
     Dosage: (180 UG 1X/WEEK SUBCUTANEOUS)
     Route: 058
     Dates: start: 20080619, end: 20080903
  3. MIRALAX (UNKNOWN) [Concomitant]
  4. ADVAIR (UNKNOWN) [Concomitant]
  5. ALBUTEROL /00139501/ (UNKNOWN) [Concomitant]
  6. BUSPIRONE (UNKNOWN) [Concomitant]
  7. CYCLOBENZAPRINE (UNKNOWN) [Concomitant]
  8. TRAZODONE (UNKNOWN) [Concomitant]
  9. GABAPENTIN (UNKNOWN) [Concomitant]
  10. DICLOFENAC (UNKNOWN) [Concomitant]
  11. PRILOSEC /00661201/ (UNKNOWN) [Concomitant]

REACTIONS (6)
  - ABDOMINAL PAIN [None]
  - ANAEMIA [None]
  - BLOOD PRESSURE INCREASED [None]
  - CELLULITIS [None]
  - NAUSEA [None]
  - VOMITING [None]
